FAERS Safety Report 20505144 (Version 1)
Quarter: 2022Q1

REPORT INFORMATION
  Report Type: Spontaneous
  Country: SI (occurrence: SI)
  Receive Date: 20220223
  Receipt Date: 20220223
  Transmission Date: 20220424
  Serious: Yes (Death, Hospitalization, Other)
  Sender: FDA-Public Use
  Company Number: SI-AMGEN-SVNSP2022027172

PATIENT
  Age: 72 Year
  Sex: Male

DRUGS (9)
  1. FILGRASTIM [Suspect]
     Active Substance: FILGRASTIM
     Indication: Leukopenia
     Dosage: UNK
     Route: 065
  2. FILGRASTIM [Suspect]
     Active Substance: FILGRASTIM
     Indication: Off label use
  3. CYCLOSPORINE [Concomitant]
     Active Substance: CYCLOSPORINE
     Dosage: UNK
  4. MYCOPHENOLATE MOFETIL [Concomitant]
     Active Substance: MYCOPHENOLATE MOFETIL
     Dosage: UNK
  5. METHYLPREDNISOLONE [Concomitant]
     Active Substance: METHYLPREDNISOLONE
     Dosage: UNK
  6. VALGANCICLOVIR [Concomitant]
     Active Substance: VALGANCICLOVIR
     Indication: Prophylaxis
     Dosage: 900 MILLIGRAM, QD
     Route: 048
  7. GANCICLOVIR [Concomitant]
     Active Substance: GANCICLOVIR
     Dosage: 325 MILLIGRAM, QD
  8. FOSCARNET [Concomitant]
     Active Substance: FOSCARNET
     Dosage: UNK
  9. FUROSEMIDE [Concomitant]
     Active Substance: FUROSEMIDE
     Dosage: 1000 MILLIGRAM, QD

REACTIONS (12)
  - Pneumonia fungal [Fatal]
  - Pneumocystis jirovecii infection [Fatal]
  - Cellulitis [Unknown]
  - Renal impairment [Unknown]
  - Hypervolaemia [Unknown]
  - Atrial fibrillation [Unknown]
  - Cytomegalovirus infection [Unknown]
  - Hypotension [Unknown]
  - Arteriosclerosis [Unknown]
  - Off label use [Unknown]
  - Hypertension [Unknown]
  - Arthralgia [Unknown]
